FAERS Safety Report 4681112-4 (Version None)
Quarter: 2005Q2

REPORT INFORMATION
  Report Type: 
  Country: None (occurrence: None)
  Receive Date: 20050601
  Receipt Date: 20050516
  Transmission Date: 20051028
  Serious: Yes (Hospitalization, Other)
  Sender: FDA-Public Use
  Company Number: US_010565964

PATIENT
  Age: 47 Year
  Sex: Female
  Weight: 90 kg

DRUGS (4)
  1. HUMALOG [Suspect]
     Indication: DIABETES MELLITUS INSULIN-DEPENDENT
  2. HUMULIN N [Suspect]
     Indication: DIABETES MELLITUS
     Dates: end: 20001130
  3. HUMULIN L [Suspect]
     Indication: DIABETES MELLITUS
     Dates: end: 20001130
  4. LANTUS [Concomitant]

REACTIONS (9)
  - BLOOD GLUCOSE FLUCTUATION [None]
  - CATARACT [None]
  - DRY EYE [None]
  - GLAUCOMA [None]
  - LACRIMAL DISORDER [None]
  - PHARMACEUTICAL PRODUCT COMPLAINT [None]
  - RETINOPATHY PROLIFERATIVE [None]
  - TREMOR [None]
  - VISUAL DISTURBANCE [None]
